FAERS Safety Report 10697945 (Version 1)
Quarter: 2015Q1

REPORT INFORMATION
  Report Type: Spontaneous
  Country: FR (occurrence: None)
  Receive Date: 20150106
  Receipt Date: 20150106
  Transmission Date: 20150721
  Serious: Yes (Congenital Anomaly)
  Sender: FDA-Public Use
  Company Number: 8003836

PATIENT
  Sex: Female

DRUGS (2)
  1. LAMICTAL [Suspect]
     Active Substance: LAMOTRIGINE
     Indication: PRODUCT USED FOR UNKNOWN INDICATION
     Dosage: FROM START TO PREGNANCY TO 29 WEEKS OF AMENORRHOEA AGAIN DECREASED TO 200 MG 2 TABLET PER DAY UP TO END OF PREGNANCY (200 MG, 2 IN 1 DAY) ?? ?2) FROM 29 WEEKS OF AMENORRHOEA TO 31 WEEKS AMENORRHOEA + 4 DAYS (300 MG,2 IN 1 D)?1) PRODUCT TAKEN BY MOTHER?
  2. LEVOTHYROX (LEVOTHYROXINE SODIUM) (TABLET) (LEVOTHYROXINE SODIUM) [Suspect]
     Active Substance: LEVOTHYROXINE
     Indication: PRODUCT USED FOR UNKNOWN INDICATION
     Dosage: 87.5 MCG, PRODUCT TAKEN BY MOTHER??
     Route: 048

REACTIONS (3)
  - Haemangioma [None]
  - Foetal exposure during pregnancy [None]
  - Ventricular septal defect [None]
